FAERS Safety Report 4350090-X (Version None)
Quarter: 2004Q2

REPORT INFORMATION
  Report Type: 
  Country: None (occurrence: None)
  Receive Date: 20040429
  Receipt Date: 20031029
  Transmission Date: 20050107
  Serious: Yes (Death)
  Sender: FDA-Public Use
  Company Number: US-GLAXOSMITHKLINE-B0313902A

PATIENT
  Age: 45 Year
  Sex: Male

DRUGS (4)
  1. WELLBUTRIN [Suspect]
     Route: 048
  2. DOXEPIN HCL [Suspect]
     Route: 048
  3. CLORAZEPATE DIPOTASSIUM [Suspect]
     Route: 048
  4. PAXIL [Suspect]
     Route: 065

REACTIONS (5)
  - CARDIO-RESPIRATORY ARREST [None]
  - COMA [None]
  - COMPLETED SUICIDE [None]
  - DEPRESSED LEVEL OF CONSCIOUSNESS [None]
  - INTENTIONAL OVERDOSE [None]
